FAERS Safety Report 17682539 (Version 6)
Quarter: 2021Q1

REPORT INFORMATION
  Report Type: Report from Study
  Country: BR (occurrence: BR)
  Receive Date: 20200418
  Receipt Date: 20210114
  Transmission Date: 20210419
  Serious: Yes (Other)
  Sender: FDA-Public Use
  Company Number: PHHY2019BR004058

PATIENT
  Age: 60 Year
  Sex: Male
  Weight: 86 kg

DRUGS (14)
  1. COSENTYX [Suspect]
     Active Substance: SECUKINUMAB
     Dosage: UNK
     Route: 058
     Dates: start: 20200119, end: 202002
  2. ENALAPRIL [Concomitant]
     Active Substance: ENALAPRIL
     Indication: HYPERTENSION
     Dosage: UNK
     Route: 065
  3. COSENTYX [Suspect]
     Active Substance: SECUKINUMAB
     Indication: PSORIATIC ARTHROPATHY
     Dosage: UNK DF
     Route: 065
     Dates: start: 201709
  4. COSENTYX [Suspect]
     Active Substance: SECUKINUMAB
     Dosage: 300 MG, (EVERY 28 DAYS)
     Route: 058
     Dates: start: 20190418
  5. COSENTYX [Suspect]
     Active Substance: SECUKINUMAB
     Dosage: 300 MG, AMPOULE
     Route: 065
     Dates: start: 2018
  6. COSENTYX [Suspect]
     Active Substance: SECUKINUMAB
     Dosage: 300 MG, (EVERY 28 DAYS)
     Route: 058
     Dates: start: 20190318
  7. COSENTYX [Suspect]
     Active Substance: SECUKINUMAB
     Dosage: 2 DF, QMO(2 AMPOULES,EVERY 19TH OF THE MONTH)
     Route: 058
  8. IODINE. [Concomitant]
     Active Substance: IODINE
     Indication: NEOPLASM MALIGNANT
     Dosage: UNK
     Route: 065
  9. CARVEDILOL. [Concomitant]
     Active Substance: CARVEDILOL
     Indication: HYPERTENSION
     Dosage: UNK
     Route: 065
  10. COSENTYX [Suspect]
     Active Substance: SECUKINUMAB
     Dosage: UNK
     Route: 065
     Dates: start: 20190521
  11. ETANERCEPT [Suspect]
     Active Substance: ETANERCEPT
     Indication: PRODUCT USED FOR UNKNOWN INDICATION
     Dosage: UNK
     Route: 065
  12. ALENIA [Concomitant]
     Indication: PRODUCT USED FOR UNKNOWN INDICATION
     Dosage: UNK
     Route: 065
  13. COSENTYX [Suspect]
     Active Substance: SECUKINUMAB
     Indication: SPONDYLITIS
     Dosage: 300 MG, (EVERY 28 DAYS)
     Route: 058
     Dates: start: 20180927, end: 20181226
  14. COSENTYX [Suspect]
     Active Substance: SECUKINUMAB
     Dosage: UNK
     Route: 065
     Dates: start: 20191219

REACTIONS (22)
  - Adenoidal hypertrophy [Not Recovered/Not Resolved]
  - Tonsillar hypertrophy [Not Recovered/Not Resolved]
  - Fingerprint loss [Not Recovered/Not Resolved]
  - Dysphonia [Recovering/Resolving]
  - Dry skin [Not Recovered/Not Resolved]
  - Dyspnoea [Unknown]
  - Scratch [Not Recovered/Not Resolved]
  - Thyroid mass [Unknown]
  - Neoplasm malignant [Unknown]
  - Acne [Not Recovered/Not Resolved]
  - Pruritus [Not Recovered/Not Resolved]
  - Skin haemorrhage [Not Recovered/Not Resolved]
  - Sleep apnoea syndrome [Not Recovered/Not Resolved]
  - Eating disorder [Recovered/Resolved]
  - Psoriasis [Recovering/Resolving]
  - Nasal septum deviation [Not Recovered/Not Resolved]
  - Pain in extremity [Not Recovered/Not Resolved]
  - Decreased immune responsiveness [Recovered/Resolved]
  - Weight decreased [Recovered/Resolved]
  - Skin exfoliation [Not Recovered/Not Resolved]
  - Pain [Unknown]
  - Back pain [Recovering/Resolving]

NARRATIVE: CASE EVENT DATE: 201709
